FAERS Safety Report 14911557 (Version 3)
Quarter: 2018Q2

REPORT INFORMATION
  Report Type: Report from Study
  Country: None (occurrence: IL)
  Receive Date: 20180518
  Receipt Date: 20180608
  Transmission Date: 20180711
  Serious: Yes (Hospitalization)
  Sender: FDA-Public Use
  Company Number: IL-ABBVIE-17P-082-1926233-00

PATIENT
  Age: 83 Year
  Sex: Female

DRUGS (12)
  1. DUODOPA [Suspect]
     Active Substance: CARBIDOPA\LEVODOPA
     Dosage: MD- 4.2 ML, CURRENT FR DAY- 2.4 ML/H, ED- 1.2 ML, CURRENT FR NIGHT- 1.2 ML/H.
     Route: 050
  2. DUODOPA [Suspect]
     Active Substance: CARBIDOPA\LEVODOPA
     Indication: PARKINSON^S DISEASE
     Dosage: CURRENT MD- 7 ML, CURRENT FIXED RATE- 2.2 ML/ HOUR, CURRENT ED- 0.8 ML
     Route: 050
     Dates: start: 20140515
  3. LEPONEX [Suspect]
     Active Substance: CLOZAPINE
     Indication: PRODUCT USED FOR UNKNOWN INDICATION
     Route: 065
  4. DUODOPA [Suspect]
     Active Substance: CARBIDOPA\LEVODOPA
     Dosage: CURRENT MD:4.2ML,CURRENT CD:2.4ML/HOUR, CURRENT NIGHT DOSE:1.2,CURRENT ED:1.2ML.
     Route: 050
  5. DUODOPA [Suspect]
     Active Substance: CARBIDOPA\LEVODOPA
     Dosage: DOSE DECREASED.
     Route: 050
  6. DUODOPA [Suspect]
     Active Substance: CARBIDOPA\LEVODOPA
     Dosage: CURRENT MORNING DOSE 3.2 ML, FIXED RATE 1.8 ML/ HOUR, NIGHT DOSE 1.0 ML, EXTRA DOSE 1.2 ML
     Route: 050
  7. DUODOPA [Suspect]
     Active Substance: CARBIDOPA\LEVODOPA
     Dosage: CURRENT FIXED RATE- 2.0 ML/ HOUR?INCREASED DOSAGE
     Route: 050
  8. DUODOPA [Suspect]
     Active Substance: CARBIDOPA\LEVODOPA
     Dosage: MD- 3.7 ML, CURRENT FR DAY- 2.0 ML/H, ED- 0.6 ML, CURRENT FR NIGHT- 1.0 ML/H.
     Route: 050
  9. DUODOPA [Suspect]
     Active Substance: CARBIDOPA\LEVODOPA
     Dosage: CURRENT MD:4.2ML,CURRENT CD:2.4ML/HOUR, CURRENT NIGHT DOSE:1.2,CURRENT ED:1.2ML
     Route: 050
  10. DUODOPA [Suspect]
     Active Substance: CARBIDOPA\LEVODOPA
     Dosage: CMD- 3.6 ML, CFD- 2.0 ML/ HOUR,?CND- 1.0 ML?CED- 0.6 ML
     Route: 050
  11. DUODOPA [Suspect]
     Active Substance: CARBIDOPA\LEVODOPA
     Dosage: CURRENT MORNING DOSE - 3.2ML?CURRENT CONTINUOUS DOSE 1.8ML/HOUR
     Route: 050
  12. DUODOPA [Suspect]
     Active Substance: CARBIDOPA\LEVODOPA
     Dosage: MORNING DOSE WAS DECREASED FROM 3.7ML TO 3.6ML
     Route: 050

REACTIONS (19)
  - Incorrect route of drug administration [Unknown]
  - Gait disturbance [Unknown]
  - Urinary tract infection [Unknown]
  - Device issue [Unknown]
  - Fall [Recovering/Resolving]
  - On and off phenomenon [Not Recovered/Not Resolved]
  - Hallucination [Recovering/Resolving]
  - Vertigo [Unknown]
  - Dyskinesia [Recovering/Resolving]
  - Confusional state [Recovering/Resolving]
  - Tongue movement disturbance [Unknown]
  - Balance disorder [Not Recovered/Not Resolved]
  - General physical health deterioration [Not Recovered/Not Resolved]
  - Decreased appetite [Not Recovered/Not Resolved]
  - Motor dysfunction [Unknown]
  - Decubitus ulcer [Recovering/Resolving]
  - Communication disorder [Unknown]
  - Intentional product misuse [Unknown]
  - Device occlusion [Unknown]

NARRATIVE: CASE EVENT DATE: 2017
